FAERS Safety Report 7404584-0 (Version None)
Quarter: 2011Q2

REPORT INFORMATION
  Report Type: 
  Country: None (occurrence: None)
  Receive Date: 20110411
  Receipt Date: 20110331
  Transmission Date: 20111010
  Serious: Yes (Hospitalization, Other)
  Sender: FDA-Public Use
  Company Number: US-BIOGENIDEC-2011BI006190

PATIENT
  Age: 48 Year
  Sex: Female
  Weight: 105 kg

DRUGS (2)
  1. TYSABRI [Suspect]
     Indication: MULTIPLE SCLEROSIS
     Route: 042
     Dates: start: 20080317
  2. DEPAKOTE [Concomitant]
     Indication: CONVULSION

REACTIONS (4)
  - FALL [None]
  - URINARY TRACT INFECTION [None]
  - DRUG ERUPTION [None]
  - CANDIDIASIS [None]
